FAERS Safety Report 24149699 (Version 1)
Quarter: 2024Q3

REPORT INFORMATION
  Report Type: Spontaneous
  Country: FR (occurrence: FR)
  Receive Date: 20240730
  Receipt Date: 20240730
  Transmission Date: 20241017
  Serious: Yes (Other)
  Sender: CELLTRION
  Company Number: FR-CELLTRION INC.-2024FR018043

PATIENT

DRUGS (2)
  1. INFLIXIMAB [Suspect]
     Active Substance: INFLIXIMAB
     Indication: Colitis ulcerative
     Dosage: ONE INJECTION EVERY 2 WEEKS
     Route: 058
     Dates: start: 2023
  2. INFLIXIMAB [Suspect]
     Active Substance: INFLIXIMAB
     Dosage: ONE INJECTION PER WEEK
     Route: 058

REACTIONS (3)
  - Colitis ulcerative [Unknown]
  - Drug level decreased [Unknown]
  - Intentional product use issue [Unknown]
